FAERS Safety Report 8595924 (Version 3)
Quarter: 2013Q4

REPORT INFORMATION
  Report Type: Spontaneous
  Country: US (occurrence: US)
  Receive Date: 20120605
  Receipt Date: 20131014
  Transmission Date: 20140711
  Serious: Yes (Hospitalization)
  Sender: FDA-Public Use
  Company Number: US-ASTRAZENECA-2012SE35397

PATIENT
  Age: 23888 Day
  Sex: Female

DRUGS (8)
  1. NEXIUM [Suspect]
     Indication: ABDOMINAL DISCOMFORT
     Route: 048
     Dates: start: 2004
  2. NEXIUM [Suspect]
     Indication: ABDOMINAL DISCOMFORT
     Dosage: ONCE A DAY
     Route: 048
  3. PRILOSEC OTC [Suspect]
     Route: 048
  4. PRILOSEC/ OMEPRAZOLE [Concomitant]
     Dates: start: 200404
  5. PRILOSEC/ OMEPRAZOLE [Concomitant]
     Dates: start: 200404
  6. PREVACID [Concomitant]
     Dates: start: 200410
  7. PEPCID [Concomitant]
  8. ZANTAC [Concomitant]
     Dates: start: 1988

REACTIONS (11)
  - Diabetes mellitus [Unknown]
  - Cardiac disorder [Unknown]
  - Limb discomfort [Unknown]
  - Osteoporosis [Unknown]
  - Gait disturbance [Unknown]
  - Multiple fractures [Unknown]
  - Arthritis [Unknown]
  - Cataract [Unknown]
  - Glaucoma [Unknown]
  - Rheumatoid arthritis [Unknown]
  - Depression [Unknown]
